FAERS Safety Report 25768247 (Version 1)
Quarter: 2025Q3

REPORT INFORMATION
  Report Type: Spontaneous
  Country: US (occurrence: US)
  Receive Date: 20250905
  Receipt Date: 20250905
  Transmission Date: 20251021
  Serious: No
  Sender: DOMPE FARMACEUTICI
  Company Number: US-FARMAPROD-202506-1946

PATIENT
  Sex: Female
  Weight: 63.5 kg

DRUGS (24)
  1. OXERVATE [Suspect]
     Active Substance: CENEGERMIN-BKBJ
     Indication: Neurotrophic keratopathy
     Route: 047
     Dates: start: 20250603
  2. OXERVATE [Suspect]
     Active Substance: CENEGERMIN-BKBJ
     Indication: Ulcerative keratitis
  3. SALINE MIST [Concomitant]
     Active Substance: SODIUM CHLORIDE
  4. VALACYCLOVIR [Concomitant]
     Active Substance: VALACYCLOVIR HYDROCHLORIDE
  5. TELMISARTAN [Concomitant]
     Active Substance: TELMISARTAN
  6. ROSUVASTATIN CALCIUM [Concomitant]
     Active Substance: ROSUVASTATIN CALCIUM
  7. REPATHA [Concomitant]
     Active Substance: EVOLOCUMAB
  8. RANOLAZINE [Concomitant]
     Active Substance: RANOLAZINE
  9. METOPROLOL TARTRATE [Concomitant]
     Active Substance: METOPROLOL TARTRATE
  10. VITAMIN D3 [Concomitant]
     Active Substance: CHOLECALCIFEROL
  11. CYANOCOBALAMIN [Concomitant]
     Active Substance: CYANOCOBALAMIN
  12. IVIZIA [Concomitant]
     Active Substance: POVIDONE
  13. MURO 128 [Concomitant]
     Active Substance: SODIUM CHLORIDE
  14. DORZOLAMIDE AND TIMOLOL [Concomitant]
     Active Substance: DORZOLAMIDE HYDROCHLORIDE\TIMOLOL MALEATE
  15. CYCLOSPORINE [Concomitant]
     Active Substance: CYCLOSPORINE
  16. CIPROFLOXACIN HYDROCHLORIDE [Concomitant]
     Active Substance: CIPROFLOXACIN HYDROCHLORIDE
  17. CALCIUM [Concomitant]
     Active Substance: CALCIUM
  18. ASPIRIN [Concomitant]
     Active Substance: ASPIRIN
  19. AMLODIPINE BESYLATE [Concomitant]
     Active Substance: AMLODIPINE BESYLATE
  20. RECLAST [Concomitant]
     Active Substance: ZOLEDRONIC ACID
  21. NITROGLYCERIN [Concomitant]
     Active Substance: NITROGLYCERIN
  22. NITROGLYCERIN [Concomitant]
     Active Substance: NITROGLYCERIN
  23. FLONASE SENSIMIST ALLERGY RELIEF [Concomitant]
     Active Substance: FLUTICASONE FUROATE
  24. ACETAMINOPHEN [Concomitant]
     Active Substance: ACETAMINOPHEN

REACTIONS (3)
  - Product dose omission issue [Unknown]
  - Eye irritation [Unknown]
  - Visual impairment [Unknown]
